FAERS Safety Report 23331057 (Version 1)
Quarter: 2023Q4

REPORT INFORMATION
  Report Type: Other
  Country: US (occurrence: None)
  Receive Date: 20231222
  Receipt Date: 20231222
  Transmission Date: 20240110
  Serious: Yes (Hospitalization, Other)
  Sender: FDA-Public Use
  Company Number: US-ROCHE-2930849

PATIENT
  Age: 80 Year
  Sex: Female
  Weight: 104.42 kg

DRUGS (10)
  1. ACTEMRA [Suspect]
     Active Substance: TOCILIZUMAB
     Indication: Vasculitis
     Route: 058
  2. ACTEMRA [Suspect]
     Active Substance: TOCILIZUMAB
  3. ACTEMRA [Suspect]
     Active Substance: TOCILIZUMAB
     Indication: Giant cell arteritis
     Route: 058
     Dates: start: 2017
  4. ACTEMRA [Suspect]
     Active Substance: TOCILIZUMAB
  5. ACTEMRA [Suspect]
     Active Substance: TOCILIZUMAB
     Indication: Pulmonary hypertension
     Route: 058
     Dates: start: 201812
  6. ACTEMRA [Suspect]
     Active Substance: TOCILIZUMAB
  7. ACTEMRA [Suspect]
     Active Substance: TOCILIZUMAB
     Indication: Arteritis
  8. ACTEMRA [Suspect]
     Active Substance: TOCILIZUMAB
  9. ACTEMRA [Suspect]
     Active Substance: TOCILIZUMAB
     Indication: Diabetes insipidus
  10. ACTEMRA [Suspect]
     Active Substance: TOCILIZUMAB

REACTIONS (9)
  - Autoimmune disorder [Unknown]
  - Gait disturbance [Recovered/Resolved]
  - Gastrooesophageal reflux disease [Unknown]
  - Gait inability [Unknown]
  - Off label use [Unknown]
  - Hypokinesia [Unknown]
  - Pain [Recovered/Resolved]
  - Asthenia [Recovered/Resolved]
  - Malaise [Unknown]

NARRATIVE: CASE EVENT DATE: 20170101
